FAERS Safety Report 9409615 (Version 1)
Quarter: 2013Q3

REPORT INFORMATION
  Report Type: Report from Study
  Country: US (occurrence: US)
  Receive Date: 20130719
  Receipt Date: 20130719
  Transmission Date: 20140515
  Serious: Yes (Other)
  Sender: FDA-Public Use
  Company Number: PHEH2013US014974

PATIENT
  Age: 50 Year
  Sex: Female
  Weight: 117.91 kg

DRUGS (1)
  1. SANDOSTATIN LAR DEPOT [Suspect]
     Indication: ACROMEGALY
     Dosage: 20 MG, EVERY FOUR WEEKS
     Route: 030
     Dates: start: 20121026

REACTIONS (3)
  - Loss of consciousness [Unknown]
  - Chest pain [Unknown]
  - Dyspnoea [Unknown]
